FAERS Safety Report 6410927-7 (Version None)
Quarter: 2009Q4

REPORT INFORMATION
  Report Type: 
  Country: None (occurrence: None)
  Receive Date: 20091022
  Receipt Date: 20091016
  Transmission Date: 20100525
  Serious: No
  Sender: FDA-Public Use
  Company Number: US-B.I. PHARMACEUTICALS,INC./RIDGEFIELD-2009-BP-12135BP

PATIENT
  Sex: Female

DRUGS (4)
  1. SPIRIVA [Suspect]
     Indication: CHRONIC OBSTRUCTIVE PULMONARY DISEASE
     Dosage: 36 MCG
     Route: 055
     Dates: start: 20091013
  2. SPIRIVA [Suspect]
     Indication: BRONCHITIS CHRONIC
  3. NICOTENE TRANSDERMAL SYSTEM [Concomitant]
     Indication: EX-TOBACCO USER
     Route: 062
     Dates: start: 20091013
  4. EXTRA ACTION COUGH SYRUP [Concomitant]
     Indication: BRONCHITIS CHRONIC
     Route: 048
     Dates: start: 20091013

REACTIONS (2)
  - CHEST PAIN [None]
  - INAPPROPRIATE SCHEDULE OF DRUG ADMINISTRATION [None]
